FAERS Safety Report 9502650 (Version 1)
Quarter: 2013Q3

REPORT INFORMATION
  Report Type: Spontaneous
  Country: ES (occurrence: ES)
  Receive Date: 20130906
  Receipt Date: 20130906
  Transmission Date: 20140515
  Serious: Yes (Life-Threatening, Hospitalization)
  Sender: FDA-Public Use
  Company Number: ES-SANOFI-AVENTIS-2013SA088329

PATIENT
  Age: 75 Year
  Sex: Female

DRUGS (9)
  1. CLEXANE [Suspect]
     Indication: PRODUCT USED FOR UNKNOWN INDICATION
     Dosage: 48MG/12H
     Route: 058
     Dates: start: 20121220, end: 20130204
  2. SINTROM [Interacting]
     Indication: CARDIAC VALVE PROSTHESIS USER
     Dosage: SP
     Route: 048
     Dates: start: 20121222, end: 20130204
  3. ESPIRONOLACTONA [Concomitant]
     Indication: CARDIAC FAILURE CONGESTIVE
     Dosage: EN DOSIS ASCENDENTE HASTA 100MG
     Route: 048
     Dates: start: 20121210
  4. FUROSEMIDE [Concomitant]
     Indication: CARDIAC FAILURE CONGESTIVE
     Dosage: IRREGULAR
     Dates: start: 20121210
  5. LEVOTIROXINA [Concomitant]
     Indication: HYPOTHYROIDISM
     Dosage: 1CP
     Route: 048
     Dates: start: 2003
  6. LORAZEPAM [Concomitant]
     Indication: INSOMNIA
     Dosage: 1MG AT 23H
     Route: 048
     Dates: start: 20121210
  7. PANTOPRAZOLE [Concomitant]
     Indication: PROPHYLAXIS AGAINST GASTROINTESTINAL ULCER
     Dosage: 1CP
     Route: 048
     Dates: start: 20121210
  8. DEPAKINE [Concomitant]
     Route: 048
     Dates: start: 20121220, end: 20130204
  9. DEPAKINE [Concomitant]
     Route: 048

REACTIONS (4)
  - Hydronephrosis [Recovered/Resolved with Sequelae]
  - Drug interaction [Unknown]
  - Abdominal wall haematoma [Recovered/Resolved with Sequelae]
  - Ileus [Recovered/Resolved]
